FAERS Safety Report 8123792-7 (Version None)
Quarter: 2012Q1

REPORT INFORMATION
  Report Type: 
  Country: None (occurrence: None)
  Receive Date: 20120208
  Receipt Date: 20120206
  Transmission Date: 20120608
  Serious: Yes (Other)
  Sender: FDA-Public Use
  Company Number: US-AMGEN-USASP2011044250

PATIENT
  Age: 40 Year
  Sex: Female
  Weight: 52 kg

DRUGS (1)
  1. ENBREL [Suspect]
     Indication: RHEUMATOID ARTHRITIS
     Dosage: 25 MG, 2 TIMES/WK
     Route: 058
     Dates: start: 19990101

REACTIONS (7)
  - DIZZINESS [None]
  - DIPLOPIA [None]
  - HEADACHE [None]
  - SINUSITIS [None]
  - SINUS HEADACHE [None]
  - EYE PRURITUS [None]
  - RHINORRHOEA [None]
